FAERS Safety Report 4491015-6 (Version None)
Quarter: 2004Q3

REPORT INFORMATION
  Report Type: 
  Country: None (occurrence: None)
  Receive Date: 20040927
  Receipt Date: 20040809
  Transmission Date: 20050211
  Serious: No
  Sender: FDA-Public Use
  Company Number: USA040875103

PATIENT
  Age: 53 Year
  Sex: Female
  Weight: 86 kg

DRUGS (4)
  1. STRATTERA [Suspect]
     Dosage: 40 MG/ TWICE DAY
     Dates: start: 20040726, end: 20040806
  2. PROZAC [Suspect]
     Dosage: 60 MG/  DAY
  3. LIPITOR [Concomitant]
  4. LORAZEPAM [Concomitant]

REACTIONS (4)
  - ASTHENIA [None]
  - CHILLS [None]
  - DRY MOUTH [None]
  - PYREXIA [None]
